APPROVED DRUG PRODUCT: ISORDIL
Active Ingredient: ISOSORBIDE DINITRATE
Strength: 10MG **Federal Register determination that product was not discontinued or withdrawn for safety or effectiveness reasons**
Dosage Form/Route: TABLET;SUBLINGUAL
Application: N012940 | Product #005
Applicant: BIOVAIL LABORATORIES INC
Approved: Jul 29, 1988 | RLD: Yes | RS: No | Type: DISCN